FAERS Safety Report 6892701-0 (Version None)
Quarter: 2010Q3

REPORT INFORMATION
  Report Type: 
  Country: None (occurrence: None)
  Receive Date: 20100731
  Receipt Date: 20080821
  Transmission Date: 20110219
  Serious: No
  Sender: FDA-Public Use
  Company Number: US-PFIZER INC-2008070717

PATIENT
  Sex: Female
  Weight: 118.18 kg

DRUGS (3)
  1. NORVASC [Suspect]
     Indication: BLOOD PRESSURE
  2. TOPROL-XL [Concomitant]
  3. DRUG, UNSPECIFIED [Concomitant]

REACTIONS (3)
  - FATIGUE [None]
  - HEADACHE [None]
  - NAUSEA [None]
